FAERS Safety Report 9870624 (Version 3)
Quarter: 2014Q1

REPORT INFORMATION
  Report Type: Spontaneous
  Country: US (occurrence: US)
  Receive Date: 20140205
  Receipt Date: 20140213
  Transmission Date: 20141002
  Serious: Yes (Hospitalization, Other)
  Sender: FDA-Public Use
  Company Number: US-GILEAD-2013-0091067

PATIENT
  Sex: Male

DRUGS (4)
  1. LETAIRIS [Suspect]
     Indication: PULMONARY HYPERTENSION
     Dosage: 10 MG, QD
     Route: 048
     Dates: start: 20120106
  2. LETAIRIS [Suspect]
     Indication: EXPOSURE TO TOXIC AGENT
  3. TYVASO [Concomitant]
  4. ADCIRCA [Concomitant]

REACTIONS (1)
  - Pulmonary hypertension [Unknown]
